FAERS Safety Report 5848879-0 (Version None)
Quarter: 2008Q3

REPORT INFORMATION
  Report Type: 
  Country: None (occurrence: None)
  Receive Date: 20080818
  Receipt Date: 20080806
  Transmission Date: 20090109
  Serious: Yes (Hospitalization)
  Sender: FDA-Public Use
  Company Number: BR-PFIZER INC-2008066226

PATIENT
  Sex: Female
  Weight: 45 kg

DRUGS (1)
  1. NEURONTIN [Suspect]
     Route: 048

REACTIONS (9)
  - ABDOMINAL DISCOMFORT [None]
  - AMNESIA [None]
  - DYSPNOEA [None]
  - FATIGUE [None]
  - HEADACHE [None]
  - HYPOAESTHESIA FACIAL [None]
  - LIP DISCOLOURATION [None]
  - RESPIRATORY DISORDER [None]
  - THROAT TIGHTNESS [None]
